FAERS Safety Report 4890011-4 (Version None)
Quarter: 2006Q1

REPORT INFORMATION
  Report Type: 
  Country: None (occurrence: None)
  Receive Date: 20060124
  Receipt Date: 20051219
  Transmission Date: 20060701
  Serious: Yes (Death)
  Sender: FDA-Public Use
  Company Number: JP-ROCHE-429538

PATIENT
  Age: 38 Year
  Sex: Male
  Weight: 55 kg

DRUGS (3)
  1. TAMIFLU [Suspect]
     Route: 048
     Dates: start: 20050313, end: 20050314
  2. HUMULIN R [Suspect]
     Indication: DIABETES MELLITUS
     Route: 058
     Dates: start: 20050310, end: 20050314
  3. HUMULIN N [Suspect]
     Indication: DIABETES MELLITUS
     Route: 058
     Dates: start: 20050312, end: 20050314

REACTIONS (11)
  - ACIDOSIS [None]
  - BLOOD PRESSURE DECREASED [None]
  - BLOOD SODIUM INCREASED [None]
  - BLOOD UREA INCREASED [None]
  - CARDIO-RESPIRATORY ARREST [None]
  - DEPRESSED LEVEL OF CONSCIOUSNESS [None]
  - DIABETIC KETOACIDOSIS [None]
  - DRUG INEFFECTIVE [None]
  - INFLUENZA [None]
  - PYREXIA [None]
  - SUDDEN DEATH [None]
